FAERS Safety Report 17983862 (Version 1)
Quarter: 2020Q3

REPORT INFORMATION
  Report Type: Spontaneous
  Country: US (occurrence: US)
  Receive Date: 20200705
  Receipt Date: 20200705
  Transmission Date: 20201103
  Serious: No
  Sender: FDA-Public Use
  Company Number: None

PATIENT
  Age: 60 Year
  Sex: Female
  Weight: 60.75 kg

DRUGS (6)
  1. LUTEIN [Concomitant]
     Active Substance: LUTEIN
  2. PROMETRIUM [Concomitant]
     Active Substance: PROGESTERONE
  3. MULTIVITAMIN [Concomitant]
     Active Substance: VITAMINS
  4. DEXTROAMPHET SACCHARAT, AMPHET ASPARTATE, DEXTROAMPHET SULFATE AND AMPHET SULFAT [Suspect]
     Active Substance: AMPHETAMINE ASPARTATE\AMPHETAMINE SULFATE\DEXTROAMPHETAMINE SACCHARATE\DEXTROAMPHETAMINE SULFATE
     Indication: NARCOLEPSY
     Dosage: ?          QUANTITY:60 TABLET(S);?
     Route: 048
     Dates: start: 20130613
  5. PROZAC [Concomitant]
     Active Substance: FLUOXETINE HYDROCHLORIDE
  6. VIT D [Concomitant]
     Active Substance: VITAMIN D NOS

REACTIONS (3)
  - Sedation [None]
  - Decreased activity [None]
  - Product substitution issue [None]

NARRATIVE: CASE EVENT DATE: 20200615
